FAERS Safety Report 23668378 (Version 1)
Quarter: 2024Q1

REPORT INFORMATION
  Report Type: Spontaneous
  Country: US (occurrence: None)
  Receive Date: 20240323
  Receipt Date: 20240323
  Transmission Date: 20240409
  Serious: Yes (unspecified)
  Sender: FDA-Public Use
  Company Number: None

PATIENT
  Age: 10 Year
  Sex: Female
  Weight: 32.7 kg

DRUGS (1)
  1. ASPARLAS [Suspect]
     Active Substance: CALASPARGASE PEGOL-MKNL
     Indication: B-cell type acute leukaemia
     Dosage: OTHER FREQUENCY : ONE TIME;?
     Route: 042
     Dates: start: 20230724, end: 20230911

REACTIONS (1)
  - Infusion related hypersensitivity reaction [None]

NARRATIVE: CASE EVENT DATE: 20230911
